FAERS Safety Report 8484219-9 (Version None)
Quarter: 2012Q3

REPORT INFORMATION
  Report Type: 
  Country: None (occurrence: None)
  Receive Date: 20120703
  Receipt Date: 20120626
  Transmission Date: 20120928
  Serious: Yes (Life-Threatening, Other)
  Sender: FDA-Public Use
  Company Number: US-JNJFOC-20120613135

PATIENT
  Sex: Male

DRUGS (3)
  1. COCAINE [Suspect]
     Indication: PRODUCT USED FOR UNKNOWN INDICATION
     Route: 065
  2. STELARA [Suspect]
     Route: 058
  3. STELARA [Suspect]
     Indication: PSORIASIS
     Route: 058

REACTIONS (1)
  - MYOPATHY [None]
